FAERS Safety Report 9728776 (Version 2)
Quarter: 2014Q3

REPORT INFORMATION
  Report Type: Spontaneous
  Country: US (occurrence: US)
  Receive Date: 20131204
  Receipt Date: 20140814
  Transmission Date: 20150326
  Serious: Yes (Other)
  Sender: FDA-Public Use
  Company Number: US-TEVA-448499USA

PATIENT
  Age: 33 Year
  Sex: Female
  Weight: 86.26 kg

DRUGS (1)
  1. PLAN B ONE-STEP [Suspect]
     Active Substance: LEVONORGESTREL
     Indication: POST COITAL CONTRACEPTION
     Dosage: 1.5 MILLIGRAM DAILY;
     Route: 048
     Dates: start: 20131110, end: 20131110

REACTIONS (4)
  - Pregnancy after post coital contraception [Recovered/Resolved]
  - Maternal exposure before pregnancy [Recovered/Resolved]
  - Live birth [Recovered/Resolved]
  - Drug ineffective [Recovered/Resolved]

NARRATIVE: CASE EVENT DATE: 20131110
